FAERS Safety Report 22352199 (Version 8)
Quarter: 2025Q1

REPORT INFORMATION
  Report Type: Spontaneous
  Country: US (occurrence: US)
  Receive Date: 20230522
  Receipt Date: 20250124
  Transmission Date: 20250408
  Serious: Yes (Other)
  Sender: PFIZER
  Company Number: US-PFIZER INC-PV202300089363

PATIENT
  Age: 81 Year
  Sex: Female

DRUGS (3)
  1. XELJANZ XR [Suspect]
     Active Substance: TOFACITINIB CITRATE
     Indication: Rheumatoid arthritis
     Dosage: 11 MG, 1X/DAY
     Route: 048
     Dates: start: 202207, end: 202308
  2. XELJANZ XR [Suspect]
     Active Substance: TOFACITINIB CITRATE
     Indication: Polymyalgia rheumatica
     Route: 048
  3. XELJANZ XR [Suspect]
     Active Substance: TOFACITINIB CITRATE
     Dosage: 11 MG, 1X/DAY
     Route: 048
     Dates: start: 2023

REACTIONS (7)
  - Spinal fracture [Unknown]
  - Fall [Unknown]
  - Cystitis [Unknown]
  - Hypoacusis [Recovering/Resolving]
  - Urinary tract infection [Unknown]
  - Cardiac disorder [Unknown]
  - Gait disturbance [Unknown]

NARRATIVE: CASE EVENT DATE: 20221201
